FAERS Safety Report 13004576 (Version 2)
Quarter: 2016Q4

REPORT INFORMATION
  Report Type: Spontaneous
  Country: FR (occurrence: FR)
  Receive Date: 20161207
  Receipt Date: 20161221
  Transmission Date: 20170207
  Serious: Yes (Death, Hospitalization, Other)
  Sender: FDA-Public Use
  Company Number: FR-009507513-1009FRA00037

PATIENT
  Age: 68 Year
  Sex: Female
  Weight: 65 kg

DRUGS (11)
  1. COZAAR [Concomitant]
     Active Substance: LOSARTAN POTASSIUM
     Indication: HYPERTENSION
     Dosage: 50 MG, QD
     Route: 048
  2. AMLOR [Concomitant]
     Active Substance: AMLODIPINE BESYLATE
     Indication: HYPERTENSION
     Dosage: 5 MG, QD
     Route: 048
  3. METOPROLOL. [Concomitant]
     Active Substance: METOPROLOL
     Indication: HYPERTENSION
     Dosage: 50 MG, QD / 1/DAY; STRENGHT: 100 (UNITS NOT PROVIDED)
     Route: 048
  4. KARDEGIC [Concomitant]
     Active Substance: ASPIRIN LYSINE
     Dosage: 160 MG, QD
     Route: 048
  5. EZETROL [Suspect]
     Active Substance: EZETIMIBE
     Indication: HYPERCHOLESTEROLAEMIA
     Dosage: 10 MG (1 TABLET), ONCE A DAY
     Route: 048
     Dates: start: 20051228, end: 20100820
  6. CLOPIDOGREL BESYLATE [Concomitant]
     Active Substance: CLOPIDOGREL BESILATE
     Dosage: 160 MG, QD / 1/DAY; STRENGTH: 75 (UNITS NOT PROVIDED)
     Route: 048
  7. IKOREL [Concomitant]
     Active Substance: NICORANDIL
     Dosage: 40 MG, QD / 1/DAY; STRENGTH: 20 (UNITS NOT PROVIDED)
     Route: 048
  8. PROCORALAN [Concomitant]
     Active Substance: IVABRADINE
     Dosage: 14 MG, QD
     Route: 048
  9. COVERAM [Concomitant]
     Active Substance: AMLODIPINE\PERINDOPRIL
     Dosage: 1/DAY; STRENGTH: 5/5 (UNITS NOT PROVIDED)
  10. TAHOR [Concomitant]
     Active Substance: ATORVASTATIN CALCIUM
     Indication: HYPERCHOLESTEROLAEMIA
     Dosage: 10 MG, QD / 1/DAY; STRENGTH: 10 (UNITS NOT PROVIDED)
     Route: 048
     Dates: start: 200111
  11. GLICLAZIDE [Concomitant]
     Active Substance: GLICLAZIDE
     Dosage: 1/DAY; STRENGTH: 30 (UNITS NOT PROVIDED)

REACTIONS (3)
  - Diabetic metabolic decompensation [Not Recovered/Not Resolved]
  - Pancreatitis acute [Recovered/Resolved]
  - Pancreatic carcinoma [Fatal]

NARRATIVE: CASE EVENT DATE: 20100820
